FAERS Safety Report 11501362 (Version 3)
Quarter: 2015Q4

REPORT INFORMATION
  Report Type: Spontaneous
  Country: US (occurrence: US)
  Receive Date: 20150914
  Receipt Date: 20151120
  Transmission Date: 20160304
  Serious: No
  Sender: FDA-Public Use
  Company Number: US-ASTRAZENECA-2015SE86616

PATIENT
  Sex: Female
  Weight: 50.8 kg

DRUGS (20)
  1. AROMASIN [Suspect]
     Active Substance: EXEMESTANE
     Indication: BREAST CANCER FEMALE
     Route: 048
     Dates: start: 20120907
  2. AFINITOR [Suspect]
     Active Substance: EVEROLIMUS
     Indication: BREAST CANCER FEMALE
     Route: 048
     Dates: start: 201404
  3. FASLODEX [Suspect]
     Active Substance: FULVESTRANT
     Route: 030
     Dates: start: 20101105, end: 201208
  4. AROMASIN [Suspect]
     Active Substance: EXEMESTANE
     Indication: BREAST CANCER FEMALE
     Route: 048
     Dates: start: 20150416, end: 201504
  5. ZOMETA [Concomitant]
     Active Substance: ZOLEDRONIC ACID
  6. LETROZOLE. [Concomitant]
     Active Substance: LETROZOLE
  7. CRESTOR [Suspect]
     Active Substance: ROSUVASTATIN CALCIUM
     Route: 048
  8. OSCAL [Concomitant]
     Active Substance: CALCIUM CARBONATE
     Dosage: 500/200
  9. AFINITOR [Suspect]
     Active Substance: EVEROLIMUS
     Indication: BREAST CANCER FEMALE
     Route: 048
     Dates: start: 20150416, end: 201504
  10. FENOFIBRATE. [Concomitant]
     Active Substance: FENOFIBRATE
  11. VITAMIN D3 [Concomitant]
     Active Substance: CHOLECALCIFEROL
     Dosage: 500-200MG,1 TABLET WITH FOOD ONCE A DAY
  12. XGEVA [Concomitant]
     Active Substance: DENOSUMAB
     Dosage: 120 MG/1.7ML SOLUTION 1.7 ML Q3 MONTHS,
  13. PREDNISOLONE ACETATE. [Concomitant]
     Active Substance: PREDNISOLONE ACETATE
     Dosage: 1%SUSPENSION 2 DROPS INTO AFFECTED EYE FOUR TIMES A DAY
  14. VITAMIN E [Concomitant]
     Active Substance: .ALPHA.-TOCOPHEROL
     Dosage: 200 UNIT CAPSULE 1 CAPSULE ONCE A DAY
  15. FEMARA [Concomitant]
     Active Substance: LETROZOLE
     Route: 048
     Dates: start: 20150504
  16. AFINITOR [Suspect]
     Active Substance: EVEROLIMUS
     Indication: BREAST CANCER FEMALE
     Route: 048
     Dates: end: 201504
  17. LEVOTHYROXINE SODIUM. [Concomitant]
     Active Substance: LEVOTHYROXINE SODIUM
     Dosage: 50 MCG TABLET, 1 TABLET EVERY MORNING ON AN EMPTY STOMACH ONCE A DAY
  18. TYLENOL [Concomitant]
     Active Substance: ACETAMINOPHEN
     Dosage: 8 HOUR 650 MG TABLET EXTENDED RELEASE AS DIRECTED
  19. VITAMIN C [Concomitant]
     Active Substance: ASCORBIC ACID
     Dosage: 500 MG TABLET CHEWABLE AS DIRECTED
  20. IBRANCE [Suspect]
     Active Substance: PALBOCICLIB
     Dosage: 125 MG DAILY X21 DAYS WITH 7 DAYS OFF EVERY 28 DAYS
     Route: 048
     Dates: start: 20150504

REACTIONS (14)
  - Throat irritation [Recovered/Resolved]
  - Disease progression [Unknown]
  - Dizziness [Recovered/Resolved]
  - Pain [Unknown]
  - Muscle spasms [Unknown]
  - Fatigue [Unknown]
  - Oral pain [Recovered/Resolved]
  - Feeling abnormal [Unknown]
  - Pain in jaw [Recovered/Resolved]
  - Drug intolerance [Unknown]
  - Diarrhoea [Unknown]
  - Pain in extremity [Unknown]
  - Drug hypersensitivity [Unknown]
  - Hyperhidrosis [Unknown]
